FAERS Safety Report 14505835 (Version 1)
Quarter: 2018Q1

REPORT INFORMATION
  Report Type: Spontaneous
  Country: JP (occurrence: JP)
  Receive Date: 20180208
  Receipt Date: 20180208
  Transmission Date: 20180509
  Serious: Yes (Hospitalization)
  Sender: FDA-Public Use
  Company Number: JP-SA-2018SA025059

PATIENT
  Age: 6 Year
  Sex: Male

DRUGS (9)
  1. FLUDARA [Suspect]
     Active Substance: FLUDARABINE PHOSPHATE
     Indication: BONE MARROW CONDITIONING REGIMEN
     Route: 041
     Dates: start: 20160823, end: 20160827
  2. ALKERAN [Suspect]
     Active Substance: MELPHALAN
     Indication: BONE MARROW CONDITIONING REGIMEN
     Route: 041
     Dates: start: 20160426, end: 20160426
  3. ALKERAN [Suspect]
     Active Substance: MELPHALAN
     Indication: BONE MARROW CONDITIONING REGIMEN
     Route: 041
     Dates: start: 20160827, end: 20160828
  4. ALKERAN [Suspect]
     Active Substance: MELPHALAN
     Indication: BONE MARROW CONDITIONING REGIMEN
     Route: 041
     Dates: start: 20160827, end: 20160828
  5. RAMOSETRON HYDROCHLORIDE [Concomitant]
     Active Substance: RAMOSETRON HYDROCHLORIDE
     Route: 065
     Dates: start: 20160421, end: 20160426
  6. BUSULFAN. [Suspect]
     Active Substance: BUSULFAN
     Indication: NEUROBLASTOMA
     Dosage: BUSULFAN 60 MG
     Route: 041
     Dates: start: 20160421, end: 20160425
  7. ALKERAN [Suspect]
     Active Substance: MELPHALAN
     Indication: BONE MARROW CONDITIONING REGIMEN
     Route: 041
     Dates: start: 20160426, end: 20160426
  8. DALTEPARIN SODIUM [Concomitant]
     Active Substance: DALTEPARIN SODIUM
     Route: 065
     Dates: start: 20160420, end: 20160524
  9. BUSULFAN. [Suspect]
     Active Substance: BUSULFAN
     Indication: BONE MARROW CONDITIONING REGIMEN
     Dosage: BUSULFAN 60 MG
     Route: 041
     Dates: start: 20160421, end: 20160425

REACTIONS (6)
  - Haemoglobin decreased [Recovering/Resolving]
  - Discoloured vomit [Recovered/Resolved]
  - Gastric antral vascular ectasia [Recovered/Resolved]
  - Faeces discoloured [Recovered/Resolved]
  - Anaemia [Recovering/Resolving]
  - Gastric haemorrhage [Recovered/Resolved]

NARRATIVE: CASE EVENT DATE: 2016
